FAERS Safety Report 7041964-X (Version None)
Quarter: 2010Q4

REPORT INFORMATION
  Report Type: 
  Country: None (occurrence: None)
  Receive Date: 20101013
  Receipt Date: 20100125
  Transmission Date: 20110411
  Serious: No
  Sender: FDA-Public Use
  Company Number: US-ASTRAZENECA-2010SE03368

PATIENT
  Age: 82 Year
  Sex: Female

DRUGS (2)
  1. SYMBICORT [Suspect]
     Dosage: 160/4.5 UG TWO TIMES A DAY
     Route: 055
     Dates: start: 20070101
  2. COMBIVENT [Concomitant]

REACTIONS (6)
  - APHONIA [None]
  - ASTHMA [None]
  - CHOKING [None]
  - COUGH [None]
  - DYSPNOEA [None]
  - RHINORRHOEA [None]
